FAERS Safety Report 6203307-0 (Version None)
Quarter: 2009Q2

REPORT INFORMATION
  Report Type: 
  Country: None (occurrence: None)
  Receive Date: 20090527
  Receipt Date: 20090519
  Transmission Date: 20091009
  Serious: Yes (Other)
  Sender: FDA-Public Use
  Company Number: PHEH2009US05036

PATIENT
  Sex: Female

DRUGS (1)
  1. RECLAST [Suspect]

REACTIONS (9)
  - ARTHRALGIA [None]
  - BLEPHARITIS [None]
  - EYE IRRITATION [None]
  - FATIGUE [None]
  - INFLUENZA LIKE ILLNESS [None]
  - JAW DISORDER [None]
  - PARAESTHESIA [None]
  - RESORPTION BONE INCREASED [None]
  - TOOTH EXTRACTION [None]
